FAERS Safety Report 8844586 (Version 1)
Quarter: 2012Q4

REPORT INFORMATION
  Report Type: Report from Study
  Country: JP (occurrence: JP)
  Receive Date: 20121017
  Receipt Date: 20121017
  Transmission Date: 20130627
  Serious: Yes (Hospitalization, Other)
  Sender: FDA-Public Use
  Company Number: JP-009507513-1210JPN002254

PATIENT
  Age: 70 Year
  Sex: Male
  Weight: 54 kg

DRUGS (3)
  1. PEGINTRON [Suspect]
     Indication: HEPATITIS C
     Dosage: 1.5 Microgram per kilogram, UNK
     Route: 058
     Dates: start: 20120720, end: 20120810
  2. REBETOL [Suspect]
     Indication: HEPATITIS C
     Dosage: 400 mg, UNK
     Route: 048
     Dates: start: 20120720, end: 20120810
  3. TELAVIC [Suspect]
     Indication: HEPATITIS C
     Dosage: 1500 mg, UNK
     Route: 048
     Dates: start: 20120720, end: 20120803

REACTIONS (2)
  - Anaemia [Recovering/Resolving]
  - Lung abscess [Recovering/Resolving]
